FAERS Safety Report 10563431 (Version 1)
Quarter: 2014Q4

REPORT INFORMATION
  Report Type: Spontaneous
  Country: US (occurrence: US)
  Receive Date: 20141104
  Receipt Date: 20141104
  Transmission Date: 20150529
  Serious: No
  Sender: FDA-Public Use
  Company Number: US-PFIZER INC-2014303602

PATIENT
  Sex: Female
  Weight: 56.2 kg

DRUGS (3)
  1. LYRICA [Suspect]
     Active Substance: PREGABALIN
     Indication: FIBROMYALGIA
     Dosage: 75 MG, 3X/DAY
     Route: 048
  2. HYDROCODONE [Concomitant]
     Active Substance: HYDROCODONE
     Indication: NEURALGIA
     Dosage: UNK
  3. MORPHINE [Concomitant]
     Active Substance: MORPHINE
     Indication: NEURALGIA
     Dosage: UNK

REACTIONS (2)
  - Pain [Unknown]
  - Feeling abnormal [Unknown]
